FAERS Safety Report 13676243 (Version 4)
Quarter: 2017Q3

REPORT INFORMATION
  Report Type: Report from Study
  Country: None (occurrence: BE)
  Receive Date: 20170622
  Receipt Date: 20170718
  Transmission Date: 20171127
  Serious: Yes (Death, Life-Threatening, Hospitalization, Other)
  Sender: FDA-Public Use
  Company Number: BE-ABBVIE-17K-013-2014401-00

PATIENT
  Sex: Male

DRUGS (3)
  1. DUODOPA [Suspect]
     Active Substance: CARBIDOPA\LEVODOPA
     Indication: PARKINSON^S DISEASE
     Dosage: MD: 4ML;?CD: 3ML/H FOR 16 HRS;?EDA: 1.5ML
     Route: 050
     Dates: start: 20140623, end: 20140624
  2. DUODOPA [Suspect]
     Active Substance: CARBIDOPA\LEVODOPA
     Dosage: CONTINUOUSLY MONITORED AND ADJUSTED?MD = 4ML?CD=7ML/HR DURING 16HRS?EDA : NOT SPECIFIED
     Route: 050
     Dates: start: 20140624, end: 20170328
  3. DUODOPA [Suspect]
     Active Substance: CARBIDOPA\LEVODOPA
     Dosage: MD: 4ML;?CD: 2.1 ML/H FOR 16 HRS;?EDA: 1ML
     Route: 050
     Dates: start: 20170328

REACTIONS (5)
  - Epilepsy [Recovered/Resolved]
  - Terminal state [Unknown]
  - Death [Fatal]
  - Cardiac arrest [Recovered/Resolved]
  - Incorrect dose administered [Unknown]
